FAERS Safety Report 5220390-X (Version None)
Quarter: 2006Q4

REPORT INFORMATION
  Report Type: 
  Country: None (occurrence: None)
  Receive Date: 20061201
  Receipt Date: 20060717
  Transmission Date: 20070319
  Serious: No
  Sender: FDA-Public Use
  Company Number: 2006PV017657

PATIENT
  Age: 64 Year
  Sex: Male
  Weight: 69.8539 kg

DRUGS (1)
  1. BYETTA [Suspect]
     Indication: DIABETES MELLITUS NON-INSULIN-DEPENDENT
     Dosage: 5 MCG;BID;SC
     Route: 058
     Dates: start: 20060401, end: 20060501

REACTIONS (2)
  - FEELING ABNORMAL [None]
  - NAUSEA [None]
